FAERS Safety Report 21826192 (Version 1)
Quarter: 2023Q1

REPORT INFORMATION
  Report Type: Spontaneous
  Country: US (occurrence: US)
  Receive Date: 20230106
  Receipt Date: 20230106
  Transmission Date: 20230418
  Serious: No
  Sender: FDA-Public Use
  Company Number: US-drreddys-SPO/USA/22/0158632

PATIENT
  Age: 66 Year
  Sex: Female

DRUGS (7)
  1. LENALIDOMIDE [Suspect]
     Active Substance: LENALIDOMIDE
     Indication: Plasma cell myeloma
     Dosage: TAKE 1 CAPSULE BY MOUTH DAILY ON DAYS 1-21. REPEAT EVERY 28 DAYS
     Route: 048
     Dates: start: 20220801
  2. BACTRIM DS TAB 800-160MG [Concomitant]
     Indication: Product used for unknown indication
     Dosage: 800-160MG
  3. CALCIUM TAB 500MG [Concomitant]
     Indication: Product used for unknown indication
  4. ELIQUIS [Concomitant]
     Active Substance: APIXABAN
     Indication: Product used for unknown indication
  5. MULTIVITAMIN TAB [Concomitant]
     Indication: Product used for unknown indication
  6. VALACYCLOVIR TAB 500MG [Concomitant]
     Indication: Product used for unknown indication
  7. ZOLEDRONIC ACID [Concomitant]
     Active Substance: ZOLEDRONIC ACID
     Indication: Product used for unknown indication
     Dosage: 4MG/5ML

REACTIONS (2)
  - Treatment noncompliance [Unknown]
  - Medication error [Unknown]
